FAERS Safety Report 19256965 (Version 3)
Quarter: 2021Q3

REPORT INFORMATION
  Report Type: Spontaneous
  Country: CA (occurrence: CA)
  Receive Date: 20210514
  Receipt Date: 20210714
  Transmission Date: 20211014
  Serious: Yes (Other)
  Sender: FDA-Public Use
  Company Number: CA-CELLTRION INC.-2021CA006549

PATIENT

DRUGS (1)
  1. INFLECTRA [Suspect]
     Active Substance: INFLIXIMAB-DYYB
     Indication: COLITIS ULCERATIVE
     Dosage: 600 MG, EVERY 6WEEKS
     Route: 042
     Dates: start: 20210211

REACTIONS (2)
  - Abortion spontaneous [Unknown]
  - Off label use [Unknown]

NARRATIVE: CASE EVENT DATE: 20210211
